FAERS Safety Report 13439211 (Version 1)
Quarter: 2017Q2

REPORT INFORMATION
  Report Type: Spontaneous
  Country: US (occurrence: US)
  Receive Date: 20170412
  Receipt Date: 20170412
  Transmission Date: 20170830
  Serious: Yes (Other)
  Sender: FDA-Public Use
  Company Number: US-ALLERGAN-1713273US

PATIENT
  Age: 45 Year
  Sex: Male

DRUGS (1)
  1. VIBERZI [Suspect]
     Active Substance: ELUXADOLINE
     Indication: PRODUCT USED FOR UNKNOWN INDICATION
     Dosage: UNK
     Route: 048
     Dates: start: 2015

REACTIONS (4)
  - Bone disorder [Unknown]
  - Infection [Unknown]
  - Haemorrhoids [Unknown]
  - Anal incontinence [Unknown]

NARRATIVE: CASE EVENT DATE: 201606
